FAERS Safety Report 22933022 (Version 2)
Quarter: 2023Q4

REPORT INFORMATION
  Report Type: Spontaneous
  Country: US (occurrence: US)
  Receive Date: 20230912
  Receipt Date: 20231010
  Transmission Date: 20240110
  Serious: Yes (Death, Disabling, Other)
  Sender: FDA-Public Use
  Company Number: US-OPELLA-2023OHG007106

PATIENT
  Age: 89 Year
  Sex: Female

DRUGS (1)
  1. GOLD BOND MEDICATED ORIGINAL STRENGTH BODY [Suspect]
     Active Substance: MENTHOL
     Route: 065

REACTIONS (8)
  - Pleural mesothelioma [Fatal]
  - Exposure to chemical pollution [Fatal]
  - Impaired work ability [Unknown]
  - Disability [Unknown]
  - Pain [Unknown]
  - Anxiety [Unknown]
  - Depression [Unknown]
  - Injury [Unknown]
